FAERS Safety Report 5668662-9 (Version None)
Quarter: 2008Q1

REPORT INFORMATION
  Report Type: 
  Country: None (occurrence: None)
  Receive Date: 20080312
  Receipt Date: 20080304
  Transmission Date: 20080703
  Serious: Yes (Death)
  Sender: FDA-Public Use
  Company Number: 163-21880-08030377

PATIENT
  Age: 63 Year
  Sex: Male

DRUGS (18)
  1. REVLIMID [Suspect]
     Indication: MYELODYSPLASTIC SYNDROME
     Dosage: 5 MG, 1 IN 2 D, ORAL
     Route: 048
     Dates: start: 20071016
  2. COLESTIPOL (COLESTIPOL) [Concomitant]
  3. VITAMIN D [Concomitant]
  4. VITAMIN B12 [Concomitant]
  5. POTASSIUM (POTASSIUM) [Concomitant]
  6. THIAMINE (THIAMINE) [Concomitant]
  7. BRUMEX [Concomitant]
  8. LANTUS [Concomitant]
  9. NOVOLOG [Concomitant]
  10. DOCUSATE (DOCUSATE) [Concomitant]
  11. ASA (ACETYSALICYLIC ACID) [Concomitant]
  12. DIPYRIDAMOLE [Concomitant]
  13. GABAPENTIN [Concomitant]
  14. LISINOPRIL [Concomitant]
  15. GLIPIZIDE [Concomitant]
  16. AMITRIPTYLINE HCL [Concomitant]
  17. ZAUOLIN [Concomitant]
  18. ALDOCODONE [Concomitant]

REACTIONS (3)
  - ASTHENIA [None]
  - DYSPNOEA [None]
  - FATIGUE [None]
